FAERS Safety Report 9848037 (Version 1)
Quarter: 2014Q1

REPORT INFORMATION
  Report Type: Spontaneous
  Country: US (occurrence: None)
  Receive Date: 20140123
  Receipt Date: 20140123
  Transmission Date: 20141002
  Serious: Yes (Hospitalization)
  Sender: FDA-Public Use
  Company Number: None

PATIENT
  Age: 69 Year
  Sex: Male
  Weight: 85.3 kg

DRUGS (1)
  1. ALLOPURINOL [Suspect]
     Dates: start: 20090529, end: 20130506

REACTIONS (8)
  - Confusional state [None]
  - Asthenia [None]
  - Dizziness [None]
  - Hypotension [None]
  - Hypotension [None]
  - Renal failure acute [None]
  - Eosinophilia [None]
  - Eosinophils urine present [None]
